FAERS Safety Report 16092365 (Version 5)
Quarter: 2019Q4

REPORT INFORMATION
  Report Type: Report from Study
  Country: US (occurrence: US)
  Receive Date: 20190319
  Receipt Date: 20191106
  Transmission Date: 20200122
  Serious: Yes (Hospitalization)
  Sender: FDA-Public Use
  Company Number: US-ACTELION-A-US2019-185656

PATIENT
  Age: 72 Year
  Sex: Female
  Weight: 87.08 kg

DRUGS (5)
  1. VELETRI [Suspect]
     Active Substance: EPOPROSTENOL
     Indication: PULMONARY ARTERIAL HYPERTENSION
     Dosage: 7.5 NG/KG, PER MIN
     Route: 042
  2. TADALAFIL. [Concomitant]
     Active Substance: TADALAFIL
  3. REMODULIN [Concomitant]
     Active Substance: TREPROSTINIL
  4. VELETRI [Suspect]
     Active Substance: EPOPROSTENOL
     Dosage: 18.5 NG/KG, PER MIN
     Route: 042
  5. VELETRI [Suspect]
     Active Substance: EPOPROSTENOL
     Dosage: 17.5 NG/KG, PER MIN
     Route: 042

REACTIONS (18)
  - Feeling abnormal [Unknown]
  - Headache [Unknown]
  - Arthralgia [Unknown]
  - Heart rate increased [Unknown]
  - Nausea [Unknown]
  - Fluid retention [Unknown]
  - Oxygen saturation decreased [Unknown]
  - Catheter site haemorrhage [Unknown]
  - Hospitalisation [Unknown]
  - Gastric haemorrhage [Unknown]
  - Diarrhoea [Unknown]
  - Gait disturbance [Unknown]
  - Anxiety [Unknown]
  - Right ventricular dysfunction [Not Recovered/Not Resolved]
  - Hypotension [Unknown]
  - Pain in jaw [Unknown]
  - Adverse event [Unknown]
  - Pain [Unknown]

NARRATIVE: CASE EVENT DATE: 20190124
